FAERS Safety Report 20748079 (Version 2)
Quarter: 2022Q2

REPORT INFORMATION
  Report Type: Spontaneous
  Country: BR (occurrence: BR)
  Receive Date: 20220426
  Receipt Date: 20220516
  Transmission Date: 20220721
  Serious: No
  Sender: FDA-Public Use
  Company Number: BR-AMGEN-BRASP2022062276

PATIENT
  Sex: Male

DRUGS (1)
  1. GRANULOKINE [Suspect]
     Active Substance: FILGRASTIM
     Indication: Product used for unknown indication
     Dosage: 300 MICROGRAM (0.5ML) (60 MU)
     Route: 065

REACTIONS (1)
  - Device physical property issue [Unknown]
